FAERS Safety Report 17796326 (Version 6)
Quarter: 2020Q3

REPORT INFORMATION
  Report Type: Spontaneous
  Country: US (occurrence: US)
  Receive Date: 20200517
  Receipt Date: 20200827
  Transmission Date: 20201102
  Serious: Yes (Hospitalization, Other)
  Sender: FDA-Public Use
  Company Number: US-ROCHE-2596398

PATIENT
  Age: 62 Year
  Sex: Female

DRUGS (21)
  1. KEPPRA [Concomitant]
     Active Substance: LEVETIRACETAM
     Route: 048
  2. LANSOPRAZOLE. [Concomitant]
     Active Substance: LANSOPRAZOLE
     Indication: ABDOMINAL DISCOMFORT
     Dosage: ONGOING: YES
  3. AZATHIOPRINE. [Concomitant]
     Active Substance: AZATHIOPRINE
     Indication: RHEUMATOID ARTHRITIS
     Dosage: ONGOING: YES
  4. ONFI [Concomitant]
     Active Substance: CLOBAZAM
     Indication: EPILEPSY
  5. HYDRALAZINE [Concomitant]
     Active Substance: HYDRALAZINE HYDROCHLORIDE
     Indication: BLOOD PRESSURE MEASUREMENT
     Route: 048
     Dates: end: 202004
  6. NITROSTAT [Concomitant]
     Active Substance: NITROGLYCERIN
     Indication: BLOOD PRESSURE MEASUREMENT
  7. KEPPRA [Concomitant]
     Active Substance: LEVETIRACETAM
     Indication: EPILEPSY
     Dosage: ONGOING: YES; 1500 IN THE AM, AND 2000 MG IN THE HS
  8. RITUXAN [Suspect]
     Active Substance: RITUXIMAB
     Dosage: EVERY 6 MONTHS; ONGOING: YES
     Route: 042
  9. RITUXAN [Suspect]
     Active Substance: RITUXIMAB
     Indication: RHEUMATOID ARTHRITIS
     Dosage: ONGOING :YES PER COURSE OF TREATMENT. HAS HAD TWO COURSES
     Route: 042
  10. BETAXOLOL. [Concomitant]
     Active Substance: BETAXOLOL
     Indication: HYPERTENSION
     Dosage: ONGOING: YES
  11. RANEXA [Concomitant]
     Active Substance: RANOLAZINE
     Dosage: FOR MICROVASCULAR ARTERIAL DISEASE IN HEART, ONGOING: YES
  12. LAMICTAL [Concomitant]
     Active Substance: LAMOTRIGINE
     Indication: EPILEPSY
     Dosage: ONGOING: YES
  13. IMURAN [Concomitant]
     Active Substance: AZATHIOPRINE
     Indication: RHEUMATOID ARTHRITIS
     Route: 048
  14. CARDIZEM [Concomitant]
     Active Substance: DILTIAZEM HYDROCHLORIDE
     Indication: BLOOD PRESSURE MEASUREMENT
     Route: 048
     Dates: end: 202004
  15. RITUXAN [Suspect]
     Active Substance: RITUXIMAB
     Dosage: EVERY 6 MONTHS; ONGOING: YES
     Route: 042
  16. RITUXAN [Suspect]
     Active Substance: RITUXIMAB
     Dosage: ONGOING: YES
     Route: 042
     Dates: start: 20190724
  17. ISOSORBIDE. [Concomitant]
     Active Substance: ISOSORBIDE
     Indication: BLOOD PRESSURE MEASUREMENT
     Route: 048
     Dates: start: 202004
  18. RITUXAN [Suspect]
     Active Substance: RITUXIMAB
     Indication: OPTIC NEURITIS
     Route: 042
     Dates: start: 20200429
  19. RITUXAN [Suspect]
     Active Substance: RITUXIMAB
     Dosage: ONGOING: YES
     Route: 042
  20. NIFEDIPINE. [Concomitant]
     Active Substance: NIFEDIPINE
  21. PREMARIN [Concomitant]
     Active Substance: ESTROGENS, CONJUGATED
     Indication: VASCULITIS
     Dosage: ONGOING: YES FOR UTERINE WALL VASCULITIS

REACTIONS (24)
  - Vomiting [Recovered/Resolved]
  - C-reactive protein increased [Unknown]
  - Facial bones fracture [Not Recovered/Not Resolved]
  - Blood pressure measurement [Unknown]
  - Rash [Unknown]
  - Finger amputation [Unknown]
  - Fall [Unknown]
  - Joint dislocation [Not Recovered/Not Resolved]
  - Dizziness [Unknown]
  - Gait disturbance [Unknown]
  - Throat irritation [Unknown]
  - White blood cell disorder [Unknown]
  - Hypertension [Unknown]
  - Dizziness [Recovered/Resolved]
  - Feeling abnormal [Unknown]
  - Focal dyscognitive seizures [Recovered/Resolved]
  - Cytokine release syndrome [Unknown]
  - Muscular weakness [Unknown]
  - B-lymphocyte count decreased [Unknown]
  - Seizure [Recovered/Resolved]
  - Tachycardia [Unknown]
  - Intraductal papillary mucinous neoplasm [Not Recovered/Not Resolved]
  - Hypotension [Not Recovered/Not Resolved]
  - Nausea [Not Recovered/Not Resolved]

NARRATIVE: CASE EVENT DATE: 20191018
